FAERS Safety Report 14587567 (Version 1)
Quarter: 2018Q1

REPORT INFORMATION
  Report Type: Spontaneous
  Country: DE (occurrence: DE)
  Receive Date: 20180301
  Receipt Date: 20180301
  Transmission Date: 20180509
  Serious: Yes (Hospitalization, Other)
  Sender: FDA-Public Use
  Company Number: DE-BAYER-2018-034980

PATIENT
  Age: 77 Year
  Sex: Male
  Weight: 60 kg

DRUGS (2)
  1. NEXAVAR [Suspect]
     Active Substance: SORAFENIB
     Indication: PALLIATIVE CARE
  2. NEXAVAR [Suspect]
     Active Substance: SORAFENIB
     Indication: HEPATOCELLULAR CARCINOMA
     Dosage: 400 MG, UNK
     Route: 048

REACTIONS (5)
  - International normalised ratio fluctuation [Recovering/Resolving]
  - Blood bilirubin increased [Recovering/Resolving]
  - Acute hepatic failure [Recovering/Resolving]
  - General physical health deterioration [Recovering/Resolving]
  - Transaminases increased [Recovering/Resolving]

NARRATIVE: CASE EVENT DATE: 20171227
